FAERS Safety Report 15114877 (Version 2)
Quarter: 2018Q3

REPORT INFORMATION
  Report Type: Spontaneous
  Country: US (occurrence: US)
  Receive Date: 20180706
  Receipt Date: 20180725
  Transmission Date: 20181010
  Serious: Yes (Hospitalization, Other)
  Sender: FDA-Public Use
  Company Number: US-NAPPMUNDI-USA-2018-0144089

PATIENT
  Age: 58 Year
  Sex: Female

DRUGS (2)
  1. OXYCODONE HYDROCHLORIDE (SIMILAR TO NDA 22?272) [Suspect]
     Active Substance: OXYCODONE HYDROCHLORIDE
     Indication: PROCEDURAL PAIN
     Dosage: 15 MG, TID
     Route: 048
     Dates: start: 201710, end: 201805
  2. MORPHINE SULFATE EXTENDED?RELEASE TABLETS (RHODES 74?769, 74?862) [Suspect]
     Active Substance: MORPHINE SULFATE
     Indication: PROCEDURAL PAIN
     Dosage: 100 MG, TID
     Route: 048
     Dates: start: 201710, end: 201805

REACTIONS (18)
  - Mobility decreased [Recovered/Resolved]
  - Candida infection [Recovered/Resolved]
  - Neck pain [Unknown]
  - Reaction to excipient [Unknown]
  - Nervous system disorder [Unknown]
  - Drug tolerance [Unknown]
  - Inadequate analgesia [Unknown]
  - Overdose [Recovered/Resolved]
  - Toxicity to various agents [Unknown]
  - Loss of consciousness [Recovered/Resolved]
  - Loss of personal independence in daily activities [Unknown]
  - Arthropathy [Recovered/Resolved]
  - Multiple organ dysfunction syndrome [Unknown]
  - Psychotic disorder [Recovered/Resolved]
  - Asthenia [Recovered/Resolved]
  - Dysarthria [Unknown]
  - Incoherent [Recovered/Resolved]
  - Therapy cessation [Recovered/Resolved]

NARRATIVE: CASE EVENT DATE: 201712
